FAERS Safety Report 5406617-X (Version None)
Quarter: 2007Q3

REPORT INFORMATION
  Report Type: 
  Country: None (occurrence: None)
  Receive Date: 20070806
  Receipt Date: 20070731
  Transmission Date: 20080115
  Serious: Yes (Other)
  Sender: FDA-Public Use
  Company Number: US-MERCK-0705USA02528

PATIENT
  Age: 59 Year
  Sex: Female
  Weight: 84 kg

DRUGS (3)
  1. FOSAMAX [Suspect]
     Indication: OSTEOPOROSIS
     Route: 048
     Dates: start: 20070419, end: 20070511
  2. CALCIUM (UNSPECIFIED) [Concomitant]
     Route: 048
     Dates: start: 20070315
  3. VITAMIN D (UNSPECIFIED) [Concomitant]
     Route: 048
     Dates: start: 20070315

REACTIONS (4)
  - APHTHOUS STOMATITIS [None]
  - DYSPHASIA [None]
  - HYPERSENSITIVITY [None]
  - SWOLLEN TONGUE [None]
